FAERS Safety Report 5301837-7 (Version None)
Quarter: 2007Q2

REPORT INFORMATION
  Report Type: 
  Country: None (occurrence: None)
  Receive Date: 20070416
  Receipt Date: 20070416
  Transmission Date: 20071010
  Serious: Yes (Other)
  Sender: FDA-Public Use
  Company Number: None

PATIENT
  Age: 48 Year
  Sex: Female
  Weight: 68.0396 kg

DRUGS (2)
  1. NADOLOL [Suspect]
     Indication: HYPERTENSION
     Dosage: ONE PILL PER DAY PO
     Route: 048
     Dates: start: 20070409, end: 20070413
  2. NADOLOL [Suspect]
     Indication: MIGRAINE
     Dosage: ONE PILL PER DAY PO
     Route: 048
     Dates: start: 20070409, end: 20070413

REACTIONS (1)
  - PARAESTHESIA [None]
